FAERS Safety Report 16606212 (Version 2)
Quarter: 2019Q3

REPORT INFORMATION
  Report Type: Spontaneous
  Country: US (occurrence: US)
  Receive Date: 20190721
  Receipt Date: 20190725
  Transmission Date: 20191004
  Serious: No
  Sender: FDA-Public Use
  Company Number: US-GALDERMA-US18028317

PATIENT
  Age: 44 Year
  Sex: Female

DRUGS (1)
  1. DIFFERIN GEL [Suspect]
     Active Substance: ADAPALENE
     Indication: PRODUCT USED FOR UNKNOWN INDICATION
     Dosage: 0.1%
     Route: 061
     Dates: start: 2018

REACTIONS (3)
  - Chemical burns of eye [Unknown]
  - Eye swelling [Unknown]
  - Dry skin [Unknown]

NARRATIVE: CASE EVENT DATE: 2018
